FAERS Safety Report 23901511 (Version 1)
Quarter: 2024Q2

REPORT INFORMATION
  Report Type: Spontaneous
  Country: US (occurrence: None)
  Receive Date: 20240526
  Receipt Date: 20240526
  Transmission Date: 20240716
  Serious: No
  Sender: FDA-Public Use
  Company Number: US-ROCHE-3531341

PATIENT

DRUGS (1)
  1. OCREVUS [Suspect]
     Active Substance: OCRELIZUMAB
     Indication: Relapsing-remitting multiple sclerosis
     Route: 065
     Dates: start: 20240319

REACTIONS (5)
  - Rhinorrhoea [Unknown]
  - Pyrexia [Unknown]
  - Malaise [Unknown]
  - Aphonia [Unknown]
  - Dysarthria [Unknown]

NARRATIVE: CASE EVENT DATE: 20240319
